FAERS Safety Report 6663691-0 (Version None)
Quarter: 2010Q1

REPORT INFORMATION
  Report Type: 
  Country: None (occurrence: None)
  Receive Date: 20100331
  Receipt Date: 20100331
  Transmission Date: 20100710
  Serious: Yes (Hospitalization, Other)
  Sender: FDA-Public Use
  Company Number: None

PATIENT
  Age: 27 Year
  Sex: Male
  Weight: 54 kg

DRUGS (23)
  1. PIPERACILLIN AND TAZOBACTAM [Suspect]
     Indication: LUNG INFECTION PSEUDOMONAL
     Dosage: 3.375GM EVERY 6 HOURS IV BOLUS
     Route: 040
     Dates: start: 20100126, end: 20100202
  2. PREDNISONE TAB [Concomitant]
  3. ACETAMINOPHEN [Concomitant]
  4. ALENDRONATE SODIUM [Concomitant]
  5. ULTRASE MT20 [Concomitant]
  6. AZITHROMYCIN [Concomitant]
  7. OSCAL 500 + D [Concomitant]
  8. CETIRIZINE HCL [Concomitant]
  9. PULMOZYME [Concomitant]
  10. ERGOCALCIFEROL [Concomitant]
  11. ESOMEPRAZOLE [Concomitant]
  12. FAMOTIDINE [Concomitant]
  13. LEVALBUTEROL HCL [Concomitant]
  14. MONTELUKAST SODIUM [Concomitant]
  15. ADEKS [Concomitant]
  16. MIRALAX [Concomitant]
  17. NEIL-MED SINUS RINSE [Concomitant]
  18. TESTOSTERONE [Concomitant]
  19. TOBRAMYCIN [Concomitant]
  20. TOBI INHALATION [Concomitant]
  21. VITAMIN A [Concomitant]
  22. VITAMIN E [Concomitant]
  23. ZOLPIDEM [Concomitant]

REACTIONS (9)
  - COUGH [None]
  - FATIGUE [None]
  - HYPERSENSITIVITY [None]
  - JAUNDICE CHOLESTATIC [None]
  - LIVER DISORDER [None]
  - OXYGEN CONSUMPTION INCREASED [None]
  - PSEUDOMONAS INFECTION [None]
  - SPUTUM CULTURE POSITIVE [None]
  - TACHYCARDIA [None]
